FAERS Safety Report 23263418 (Version 3)
Quarter: 2025Q1

REPORT INFORMATION
  Report Type: Report from Study
  Country: CA (occurrence: CA)
  Receive Date: 20231205
  Receipt Date: 20250310
  Transmission Date: 20250409
  Serious: Yes (Hospitalization, Other)
  Sender: TAKEDA
  Company Number: CA-TAKEDA-2023TUS075995

PATIENT
  Age: 65 Year
  Sex: Male

DRUGS (9)
  1. VEDOLIZUMAB [Suspect]
     Active Substance: VEDOLIZUMAB
     Indication: Colitis ulcerative
  2. VEDOLIZUMAB [Suspect]
     Active Substance: VEDOLIZUMAB
  3. VEDOLIZUMAB [Suspect]
     Active Substance: VEDOLIZUMAB
  4. DEXILANT [Suspect]
     Active Substance: DEXLANSOPRAZOLE
     Indication: Dyspepsia
  5. PREDNISONE [Concomitant]
     Active Substance: PREDNISONE
  6. METOPROLOL [Concomitant]
     Active Substance: METOPROLOL
  7. DOVONEX [Concomitant]
     Active Substance: CALCIPOTRIENE
  8. PRO-Amiodarone [Concomitant]
  9. ENTRESTO [Concomitant]
     Active Substance: SACUBITRIL\VALSARTAN

REACTIONS (2)
  - Cholelithiasis [Recovered/Resolved]
  - Hernia [Unknown]

NARRATIVE: CASE EVENT DATE: 20231121
